FAERS Safety Report 8921109 (Version 2)
Quarter: 2013Q1

REPORT INFORMATION
  Report Type: Spontaneous
  Country: US (occurrence: US)
  Receive Date: 20121122
  Receipt Date: 20130215
  Transmission Date: 20140127
  Serious: Yes (Other)
  Sender: FDA-Public Use
  Company Number: US-009507513-1211USA005585

PATIENT
  Sex: Female

DRUGS (3)
  1. PEGINTRON [Suspect]
     Indication: HEPATITIS C
     Dosage: 80/0.5, QW
     Dates: start: 20120312, end: 20130204
  2. RIBAVIRIN [Suspect]
     Indication: HEPATITIS C
     Dosage: UNK
     Dates: start: 20120312, end: 20130204
  3. VICTRELIS [Suspect]
     Indication: HEPATITIS C
     Dosage: UNK
     Dates: start: 20120801, end: 20121101

REACTIONS (15)
  - Anaemia [Unknown]
  - Memory impairment [Unknown]
  - Gait disturbance [Unknown]
  - Fall [Unknown]
  - Fracture [Unknown]
  - Balance disorder [Unknown]
  - Ataxia [Unknown]
  - Chills [Unknown]
  - Hair texture abnormal [Unknown]
  - Alopecia [Unknown]
  - Pruritus [Unknown]
  - Haemorrhage [Unknown]
  - Panic attack [Unknown]
  - Drug dose omission [Unknown]
  - Product quality issue [Unknown]
